FAERS Safety Report 4564968-5 (Version None)
Quarter: 2005Q1

REPORT INFORMATION
  Report Type: 
  Country: None (occurrence: None)
  Receive Date: 20050131
  Receipt Date: 20050124
  Transmission Date: 20050727
  Serious: Yes (Hospitalization)
  Sender: FDA-Public Use
  Company Number: US-JNJFOC-20050106363

PATIENT
  Sex: Male

DRUGS (1)
  1. DURAGESIC [Suspect]
     Dosage: PATIENT USES COMBINATIONS OF 50 UG/HR, 75 UG/HR, AND 100 UG/HR PATCHES.
     Route: 062
     Dates: start: 20040501

REACTIONS (2)
  - APPLICATION SITE IRRITATION [None]
  - KNEE ARTHROPLASTY [None]
